FAERS Safety Report 13570930 (Version 1)
Quarter: 2017Q2

REPORT INFORMATION
  Report Type: Spontaneous
  Country: US (occurrence: US)
  Receive Date: 20170523
  Receipt Date: 20170523
  Transmission Date: 20170830
  Serious: No
  Sender: FDA-Public Use
  Company Number: US-TEVA-677258USA

PATIENT
  Sex: Female
  Weight: 63.56 kg

DRUGS (2)
  1. KELNOR 1/35 [Suspect]
     Active Substance: ETHINYL ESTRADIOL\ETHYNODIOL DIACETATE
     Indication: CONTRACEPTION
  2. KELNOR 1/35 [Suspect]
     Active Substance: ETHINYL ESTRADIOL\ETHYNODIOL DIACETATE
     Indication: ACNE
     Dosage: 1 MG/35 MCG
     Dates: start: 2015

REACTIONS (4)
  - Therapeutic response unexpected [Unknown]
  - Drug prescribing error [Unknown]
  - Product use in unapproved indication [Unknown]
  - Abdominal distension [Not Recovered/Not Resolved]
